APPROVED DRUG PRODUCT: CODEINE SULFATE
Active Ingredient: CODEINE SULFATE
Strength: 30MG/5ML
Dosage Form/Route: SOLUTION;ORAL
Application: N202245 | Product #001
Applicant: HIKMA PHARMACEUTICALS USA INC
Approved: Jun 30, 2011 | RLD: No | RS: No | Type: DISCN